FAERS Safety Report 5243854-1 (Version None)
Quarter: 2007Q1

REPORT INFORMATION
  Report Type: 
  Country: None (occurrence: None)
  Receive Date: 20070222
  Receipt Date: 20070213
  Transmission Date: 20070707
  Serious: Yes (Other)
  Sender: FDA-Public Use
  Company Number: JP-ABBOTT-07P-087-0359097-00

PATIENT
  Age: 69 Year
  Sex: Male

DRUGS (1)
  1. LIPIDIL [Suspect]
     Indication: DRUG USE FOR UNKNOWN INDICATION
     Route: 048
     Dates: start: 20061005, end: 20061116

REACTIONS (2)
  - JAUNDICE [None]
  - MALAISE [None]
